FAERS Safety Report 8217517-4 (Version None)
Quarter: 2012Q1

REPORT INFORMATION
  Report Type: 
  Country: None (occurrence: None)
  Receive Date: 20120314
  Receipt Date: 20120305
  Transmission Date: 20120608
  Serious: Yes (Death, Hospitalization)
  Sender: FDA-Public Use
  Company Number: 2012ST000244

PATIENT
  Age: 29 Year
  Sex: Male
  Weight: 63.05 kg

DRUGS (8)
  1. ADRIAMYCIN PFS [Concomitant]
  2. CYTOXAN [Concomitant]
  3. ETOPOSIDE [Concomitant]
  4. BLEOMYCIN SULFATE [Concomitant]
  5. PREDNISONE [Concomitant]
  6. MATULANE [Suspect]
     Indication: HODGKIN'S DISEASE
     Dosage: 200 MG;QD;PO ; 150 MG;QD;PO
     Route: 048
     Dates: start: 20120216, end: 20120101
  7. MATULANE [Suspect]
     Indication: HODGKIN'S DISEASE
     Dosage: 200 MG;QD;PO ; 150 MG;QD;PO
     Route: 048
     Dates: start: 20120216, end: 20120101
  8. VINCRISTINE [Concomitant]

REACTIONS (8)
  - GAS GANGRENE [None]
  - ABDOMINAL PAIN [None]
  - WHITE BLOOD CELL COUNT DECREASED [None]
  - CLOSTRIDIAL INFECTION [None]
  - NEUTROPENIA [None]
  - PYREXIA [None]
  - PLATELET COUNT DECREASED [None]
  - HAEMOGLOBIN DECREASED [None]
